FAERS Safety Report 7411693-9 (Version None)
Quarter: 2011Q2

REPORT INFORMATION
  Report Type: 
  Country: None (occurrence: None)
  Receive Date: 20110413
  Receipt Date: 20101110
  Transmission Date: 20111010
  Serious: Yes (Other)
  Sender: FDA-Public Use
  Company Number: US-BRISTOL-MYERS SQUIBB COMPANY-15378227

PATIENT
  Age: 42 Year
  Sex: Female
  Weight: 68 kg

DRUGS (4)
  1. OXYCODONE [Concomitant]
  2. ERBITUX [Suspect]
     Indication: COLON CANCER METASTATIC
     Dates: start: 20101103
  3. FENTANYL [Concomitant]
  4. OMEPRAZOLE [Concomitant]

REACTIONS (3)
  - HEADACHE [None]
  - PYREXIA [None]
  - MALAISE [None]
